FAERS Safety Report 9241105 (Version 4)
Quarter: 2013Q2

REPORT INFORMATION
  Report Type: Spontaneous
  Country: JP (occurrence: JP)
  Receive Date: 20130419
  Receipt Date: 20130606
  Transmission Date: 20140414
  Serious: Yes (Hospitalization, Other)
  Sender: FDA-Public Use
  Company Number: JP-AMGEN-JPNSP2013026984

PATIENT
  Age: 63 Year
  Sex: Female
  Weight: 48 kg

DRUGS (6)
  1. ENBREL [Suspect]
     Indication: RHEUMATOID ARTHRITIS
     Dosage: 25 MG, QWK
     Route: 058
     Dates: start: 20110210
  2. PROGRAF [Suspect]
     Indication: RHEUMATOID ARTHRITIS
     Dosage: 1 MG DAILY
     Route: 048
     Dates: start: 20090513, end: 20090603
  3. PROGRAF [Suspect]
     Dosage: 1.5 MG DAILY
     Route: 048
     Dates: start: 20090604, end: 20100519
  4. PROGRAF [Suspect]
     Dosage: 2 MG DAILY
     Route: 048
     Dates: start: 20100520, end: 20100623
  5. PROGRAF [Suspect]
     Dosage: 2.5 MG, UNK
     Route: 048
     Dates: start: 20100624, end: 20110324
  6. PROGRAF [Suspect]
     Dosage: 1.5 MG DAILY
     Route: 048
     Dates: start: 20110325

REACTIONS (3)
  - Peritonsillitis [Recovered/Resolved]
  - Peritonsillar abscess [Recovered/Resolved]
  - Streptococcal infection [Recovered/Resolved]
